FAERS Safety Report 7620793-X (Version None)
Quarter: 2011Q3

REPORT INFORMATION
  Report Type: 
  Country: None (occurrence: None)
  Receive Date: 20110719
  Receipt Date: 20110708
  Transmission Date: 20111222
  Serious: Yes (Other)
  Sender: FDA-Public Use
  Company Number: PHHY2011US61168

PATIENT
  Age: 57 Year
  Sex: Male

DRUGS (4)
  1. VALPROATE SODIUM [Suspect]
     Dosage: 125 MG, BID
  2. VALPROATE SODIUM [Suspect]
     Dosage: 500 MG, BID
  3. ENTACAPONE [Concomitant]
  4. LEVODOPA [Concomitant]

REACTIONS (3)
  - GAIT DISTURBANCE [None]
  - IMPULSE-CONTROL DISORDER [None]
  - MOBILITY DECREASED [None]
